FAERS Safety Report 11258975 (Version 1)
Quarter: 2015Q3

REPORT INFORMATION
  Report Type: Spontaneous
  Country: US (occurrence: US)
  Receive Date: 20150710
  Receipt Date: 20150710
  Transmission Date: 20151125
  Serious: Yes (Hospitalization)
  Sender: FDA-Public Use
  Company Number: PHHY2015US080802

PATIENT
  Age: 26 Year
  Sex: Female

DRUGS (1)
  1. PARACETAMOL [Suspect]
     Active Substance: ACETAMINOPHEN
     Indication: BACK PAIN
     Route: 065

REACTIONS (10)
  - Nausea [Recovering/Resolving]
  - Toxicity to various agents [Recovering/Resolving]
  - Jaundice [Recovering/Resolving]
  - Overdose [Recovering/Resolving]
  - Vomiting [Recovering/Resolving]
  - Tremor [Recovering/Resolving]
  - Abdominal pain [Recovering/Resolving]
  - Abdominal tenderness [Recovering/Resolving]
  - Ocular icterus [Recovering/Resolving]
  - Acute hepatic failure [Recovering/Resolving]
